FAERS Safety Report 8116658-X (Version None)
Quarter: 2012Q1

REPORT INFORMATION
  Report Type: 
  Country: None (occurrence: None)
  Receive Date: 20120206
  Receipt Date: 20120126
  Transmission Date: 20120608
  Serious: Yes (Hospitalization)
  Sender: FDA-Public Use
  Company Number: PHHY2012JP007383

PATIENT
  Age: 80 Year
  Sex: Female

DRUGS (3)
  1. ALDACTONE [Interacting]
     Dosage: UNK UKN, UNK
     Route: 048
  2. NEORAL [Suspect]
     Indication: COLLAGEN DISORDER
     Dosage: 75 MG, UNK
     Route: 048
     Dates: end: 20111201
  3. CORTICOSTEROIDS [Suspect]
     Dosage: UNK UKN, UNK
     Route: 048

REACTIONS (3)
  - ACUTE MYOCARDIAL INFARCTION [None]
  - DRUG INTERACTION [None]
  - DEHYDRATION [None]
